FAERS Safety Report 6014534-X (Version None)
Quarter: 2008Q4

REPORT INFORMATION
  Report Type: 
  Country: None (occurrence: None)
  Receive Date: 20081219
  Receipt Date: 20080805
  Transmission Date: 20090506
  Serious: No
  Sender: FDA-Public Use
  Company Number: A0741147A

PATIENT
  Age: 58 Year
  Sex: Male

DRUGS (6)
  1. AVODART [Suspect]
     Indication: BENIGN PROSTATIC HYPERPLASIA
     Dosage: .5MG PER DAY
     Route: 048
     Dates: start: 20070101
  2. FLOMAX [Suspect]
     Dosage: .4MG PER DAY
     Dates: start: 20061110, end: 20071101
  3. BENICAR HCT [Concomitant]
  4. PREVACID [Concomitant]
  5. ZYRTEC [Concomitant]
  6. PROVIGIL [Concomitant]

REACTIONS (2)
  - LIBIDO DECREASED [None]
  - RETROGRADE EJACULATION [None]
